FAERS Safety Report 18456976 (Version 1)
Quarter: 2020Q4

REPORT INFORMATION
  Report Type: Spontaneous
  Country: US (occurrence: US)
  Receive Date: 20201103
  Receipt Date: 20201103
  Transmission Date: 20210114
  Serious: Yes (Hospitalization)
  Sender: FDA-Public Use
  Company Number: NVSC2020US293452

PATIENT
  Age: 54 Year
  Sex: Male

DRUGS (15)
  1. NOREPINEPHRINE. [Suspect]
     Active Substance: NOREPINEPHRINE
     Indication: CARDIAC ARREST
     Dosage: UNK
     Route: 040
  2. NALOXONE [Concomitant]
     Active Substance: NALOXONE
     Indication: CARDIAC ARREST
     Dosage: UNK
     Route: 042
  3. INSULIN [Concomitant]
     Active Substance: INSULIN NOS
     Indication: PRODUCT USED FOR UNKNOWN INDICATION
     Dosage: UNK
     Route: 042
  4. DEXTROSE. [Concomitant]
     Active Substance: DEXTROSE
     Indication: PRODUCT USED FOR UNKNOWN INDICATION
     Dosage: UNK
     Route: 065
  5. VASOPRESSIN. [Concomitant]
     Active Substance: VASOPRESSIN
     Indication: PRODUCT USED FOR UNKNOWN INDICATION
     Dosage: UNK
     Route: 042
  6. KETAMINE [Concomitant]
     Active Substance: KETAMINE
     Indication: PRODUCT USED FOR UNKNOWN INDICATION
     Dosage: UNK
     Route: 042
  7. POTASSIUM CHLORIDE. [Concomitant]
     Active Substance: POTASSIUM CHLORIDE
     Indication: PRODUCT USED FOR UNKNOWN INDICATION
     Dosage: 60 MMOL
     Route: 050
  8. CLEVIDIPINE [Concomitant]
     Active Substance: CLEVIDIPINE
     Indication: HYPERTENSION
     Dosage: UNK
     Route: 065
  9. CALCIUM CHLORIDE. [Concomitant]
     Active Substance: CALCIUM CHLORIDE
     Indication: PRODUCT USED FOR UNKNOWN INDICATION
     Dosage: UNK
     Route: 042
  10. ASPIRIN. [Concomitant]
     Active Substance: ASPIRIN
     Indication: PRODUCT USED FOR UNKNOWN INDICATION
     Dosage: UNK
     Route: 054
  11. POTASSIUM CHLORIDE. [Concomitant]
     Active Substance: POTASSIUM CHLORIDE
     Dosage: 80 MMOL
     Route: 042
  12. AMIODARONE [Concomitant]
     Active Substance: AMIODARONE
     Indication: CARDIAC ARREST
     Dosage: UNK
     Route: 042
  13. POTASSIUM CHLORIDE. [Concomitant]
     Active Substance: POTASSIUM CHLORIDE
     Dosage: 40 MMOL
     Route: 042
  14. SODIUM BICARBONATE. [Concomitant]
     Active Substance: SODIUM BICARBONATE
     Indication: PRODUCT USED FOR UNKNOWN INDICATION
     Dosage: UNK
     Route: 042
  15. ROCURONIUM [Concomitant]
     Active Substance: ROCURONIUM BROMIDE
     Indication: PRODUCT USED FOR UNKNOWN INDICATION
     Dosage: UNK
     Route: 042

REACTIONS (1)
  - Condition aggravated [Unknown]
